FAERS Safety Report 5632048-3 (Version None)
Quarter: 2008Q1

REPORT INFORMATION
  Report Type: 
  Country: None (occurrence: None)
  Receive Date: 20080220
  Receipt Date: 20080213
  Transmission Date: 20080703
  Serious: Yes (Hospitalization)
  Sender: FDA-Public Use
  Company Number: DE-BRISTOL-MYERS SQUIBB COMPANY-14066328

PATIENT
  Age: 25 Year
  Sex: Female
  Weight: 49 kg

DRUGS (1)
  1. ORENCIA [Suspect]
     Indication: JUVENILE ARTHRITIS
     Route: 042
     Dates: start: 20070101

REACTIONS (3)
  - ANOREXIA [None]
  - NAUSEA [None]
  - WEIGHT DECREASED [None]
